FAERS Safety Report 5930611-3 (Version None)
Quarter: 2008Q4

REPORT INFORMATION
  Report Type: 
  Country: None (occurrence: None)
  Receive Date: 20081027
  Receipt Date: 20081016
  Transmission Date: 20090506
  Serious: Yes (Other)
  Sender: FDA-Public Use
  Company Number: US-JNJFOC-20080804892

PATIENT
  Sex: Female
  Weight: 66.23 kg

DRUGS (2)
  1. DURAGESIC-100 [Suspect]
     Indication: PAIN
     Route: 062
  2. FENTANYL TRANSDERMAL SYSTEM [Suspect]
     Indication: PAIN
     Route: 062

REACTIONS (5)
  - BREAKTHROUGH PAIN [None]
  - HYPERHIDROSIS [None]
  - OSTEOARTHRITIS [None]
  - PRODUCT QUALITY ISSUE [None]
  - RHEUMATOID ARTHRITIS [None]
